FAERS Safety Report 8915810 (Version 2)
Quarter: 2013Q3

REPORT INFORMATION
  Report Type: Spontaneous
  Country: US (occurrence: US)
  Receive Date: 20121119
  Receipt Date: 20130712
  Transmission Date: 20140515
  Serious: Yes (Hospitalization)
  Sender: FDA-Public Use
  Company Number: US-GLAXOSMITHKLINE-A1001228A

PATIENT
  Sex: Female

DRUGS (2)
  1. TARGET NTS CLEAR [Suspect]
     Indication: SMOKING CESSATION THERAPY
     Route: 062
     Dates: start: 20121007
  2. CELEXA [Suspect]
     Route: 065

REACTIONS (14)
  - Syncope [Recovered/Resolved]
  - Fall [Recovered/Resolved]
  - Heart rate decreased [Recovered/Resolved]
  - Pulse absent [Recovered/Resolved]
  - Dehydration [Unknown]
  - Hypotension [Unknown]
  - Application site pruritus [Not Recovered/Not Resolved]
  - Application site erythema [Not Recovered/Not Resolved]
  - Application site urticaria [Not Recovered/Not Resolved]
  - Application site hyperaesthesia [Unknown]
  - Nicotine dependence [Unknown]
  - Irritability [Unknown]
  - Product quality issue [Unknown]
  - Drug administration error [Unknown]
